FAERS Safety Report 10487389 (Version 3)
Quarter: 2014Q4

REPORT INFORMATION
  Report Type: Spontaneous
  Country: BR (occurrence: BR)
  Receive Date: 20141001
  Receipt Date: 20141118
  Transmission Date: 20150528
  Serious: Yes (Other)
  Sender: FDA-Public Use
  Company Number: BR-PFIZER INC-2014264955

PATIENT
  Age: 84 Year
  Sex: Female
  Weight: 82 kg

DRUGS (1)
  1. XALATAN [Suspect]
     Active Substance: LATANOPROST
     Indication: GLAUCOMA
     Dosage: 1 GTT EACH EYE, 1X/DAY AT NIGHT
     Route: 047
     Dates: start: 2002

REACTIONS (3)
  - Product packaging quantity issue [Unknown]
  - Cataract [Unknown]
  - Circumstance or information capable of leading to medication error [Unknown]
